FAERS Safety Report 22841947 (Version 2)
Quarter: 2024Q2

REPORT INFORMATION
  Report Type: Report from Study
  Country: AU (occurrence: AU)
  Receive Date: 20230821
  Receipt Date: 20240429
  Transmission Date: 20240716
  Serious: Yes (Death)
  Sender: FDA-Public Use
  Company Number: AU-ABBVIE-5374169

PATIENT
  Age: 95 Year
  Sex: Male

DRUGS (1)
  1. LEUPROLIDE ACETATE [Suspect]
     Active Substance: ISOPROPYL ALCOHOL\LEUPROLIDE ACETATE
     Indication: Prostate cancer
     Dosage: LAST ADMIN DATE: 2023
     Route: 030
     Dates: start: 20230223

REACTIONS (1)
  - Death [Fatal]

NARRATIVE: CASE EVENT DATE: 20230815
